FAERS Safety Report 22717102 (Version 3)
Quarter: 2024Q1

REPORT INFORMATION
  Report Type: Spontaneous
  Country: JP (occurrence: JP)
  Receive Date: 20230718
  Receipt Date: 20240202
  Transmission Date: 20240410
  Serious: Yes (Death, Life-Threatening, Hospitalization, Other)
  Sender: FDA-Public Use
  Company Number: JP-SA-2023SA215779

PATIENT
  Age: 78 Year
  Sex: Female

DRUGS (7)
  1. LIBTAYO [Suspect]
     Active Substance: CEMIPLIMAB-RWLC
     Indication: Squamous cell carcinoma of the cervix
     Dosage: DAILY DOSE: 350 MG
     Route: 041
     Dates: start: 20230620, end: 20230704
  2. CARBOCYSTEINE [Concomitant]
     Active Substance: CARBOCYSTEINE
     Indication: Product used for unknown indication
     Dosage: 500 MG, TID
     Route: 048
     Dates: end: 20230704
  3. DIETARY SUPPLEMENT\PROBIOTICS [Concomitant]
     Active Substance: DIETARY SUPPLEMENT\PROBIOTICS NOS
     Indication: Product used for unknown indication
     Dosage: UNK UNK, TID
     Route: 048
     Dates: end: 20230704
  4. ERYTHROCIN [ERYTHROMYCIN ETHYLSUCCINATE] [Concomitant]
     Indication: Product used for unknown indication
     Dosage: 200 MG, BID
     Route: 048
     Dates: end: 20230704
  5. AMBROXOL HYDROCHLORIDE [Concomitant]
     Active Substance: AMBROXOL HYDROCHLORIDE
     Indication: Product used for unknown indication
     Dosage: DAILY DOSE: 45 MG
     Route: 048
     Dates: end: 20230704
  6. NAPROXEN [Concomitant]
     Active Substance: NAPROXEN
     Indication: Product used for unknown indication
     Dosage: 100 MG, TID
     Route: 048
     Dates: end: 20230704
  7. LANSOPRAZOLE [Concomitant]
     Active Substance: LANSOPRAZOLE
     Indication: Product used for unknown indication
     Dosage: DAILY DOSE: 15 MG
     Route: 048
     Dates: end: 20230704

REACTIONS (6)
  - Pneumonia bacterial [Fatal]
  - Pyrexia [Fatal]
  - Productive cough [Fatal]
  - Cough [Fatal]
  - Respiratory failure [Fatal]
  - Interstitial lung disease [Not Recovered/Not Resolved]

NARRATIVE: CASE EVENT DATE: 20230622
